FAERS Safety Report 21933633 (Version 1)
Quarter: 2023Q1

REPORT INFORMATION
  Report Type: Report from Study
  Country: DE (occurrence: DE)
  Receive Date: 20230201
  Receipt Date: 20230201
  Transmission Date: 20230417
  Serious: Yes (Hospitalization)
  Sender: FDA-Public Use
  Company Number: DE-SA-SAC20220725000309

PATIENT
  Age: 65 Year
  Sex: Male
  Weight: 74.2 kg

DRUGS (8)
  1. ISATUXIMAB [Suspect]
     Active Substance: ISATUXIMAB
     Indication: Plasma cell myeloma
     Dosage: 742 MG
     Route: 041
     Dates: start: 20210628, end: 20210628
  2. ISATUXIMAB [Suspect]
     Active Substance: ISATUXIMAB
     Dosage: 742 MG
     Route: 041
     Dates: start: 20220711, end: 20220711
  3. LENALIDOMIDE [Suspect]
     Active Substance: LENALIDOMIDE
     Indication: Plasma cell myeloma
     Dosage: 715 MG
     Route: 048
     Dates: start: 20200915, end: 20200915
  4. LENALIDOMIDE [Suspect]
     Active Substance: LENALIDOMIDE
     Dosage: 715 MG
     Route: 048
     Dates: start: 20220714, end: 20220714
  5. BORTEZOMIB [Concomitant]
     Active Substance: BORTEZOMIB
     Indication: Plasma cell myeloma
     Dosage: 2.51 MG
     Route: 058
     Dates: start: 20200915, end: 20200915
  6. BORTEZOMIB [Concomitant]
     Active Substance: BORTEZOMIB
     Dosage: 2.51 MG
     Route: 058
     Dates: start: 20201127, end: 20201127
  7. DEXAMETHASONE [Concomitant]
     Active Substance: DEXAMETHASONE
     Indication: Plasma cell myeloma
     Dosage: 20 MG
     Route: 048
     Dates: start: 20200915, end: 20200915
  8. DEXAMETHASONE [Concomitant]
     Active Substance: DEXAMETHASONE
     Dosage: 20 MG
     Route: 048
     Dates: start: 20210108, end: 20210108

REACTIONS (1)
  - COVID-19 [Recovered/Resolved]

NARRATIVE: CASE EVENT DATE: 20220715
